FAERS Safety Report 23493023 (Version 2)
Quarter: 2024Q1

REPORT INFORMATION
  Report Type: Report from Study
  Country: CO (occurrence: CO)
  Receive Date: 20240207
  Receipt Date: 20240305
  Transmission Date: 20240409
  Serious: Yes (Other)
  Sender: FDA-Public Use
  Company Number: CO-BAYER-2023A178420

PATIENT
  Sex: Female

DRUGS (2)
  1. EYLEA [Suspect]
     Active Substance: AFLIBERCEPT
     Indication: Diabetic retinal oedema
     Dosage: 2 MG, ONCE, SOLUTION FOR INJECTION, 40 MG/ML
     Route: 031
     Dates: start: 20230307, end: 20230307
  2. EYLEA [Suspect]
     Active Substance: AFLIBERCEPT
     Dosage: 2 MG, ONCE, 40 MG/ML VIAL WITH AFLIBERCEPT, SOLUTION FOR INJECTION, 40 MG/ML
     Route: 031
     Dates: start: 20231031, end: 20231031

REACTIONS (2)
  - Blindness [Not Recovered/Not Resolved]
  - Eye pain [Not Recovered/Not Resolved]

NARRATIVE: CASE EVENT DATE: 20231101
